FAERS Safety Report 11038671 (Version 2)
Quarter: 2015Q2

REPORT INFORMATION
  Report Type: Report from Study
  Country: DE (occurrence: DE)
  Receive Date: 20150416
  Receipt Date: 20150423
  Transmission Date: 20150821
  Serious: Yes (Hospitalization, Other)
  Sender: FDA-Public Use
  Company Number: DE-GILEAD-2015-0148090

PATIENT
  Age: 47 Year
  Sex: Male
  Weight: 90 kg

DRUGS (21)
  1. SOFOSBUVIR [Suspect]
     Active Substance: SOFOSBUVIR
     Indication: CHRONIC HEPATITIS C
     Dosage: 400 MG, QD
     Route: 048
     Dates: start: 20141126, end: 20150211
  2. METHADONE [Concomitant]
     Active Substance: METHADONE HYDROCHLORIDE
     Dosage: 18 ML, QD
     Dates: start: 20150121
  3. SALBUTAMOL [Concomitant]
     Active Substance: ALBUTEROL
     Dosage: UNK
     Dates: start: 20150312
  4. COPEGUS [Suspect]
     Active Substance: RIBAVIRIN
     Indication: CHRONIC HEPATITIS C
     Dosage: 200 MG, QD
     Route: 048
     Dates: start: 20141126, end: 20150211
  5. ASPIRIN. [Concomitant]
     Active Substance: ASPIRIN
     Dosage: 100 MG, QD
  6. DOXEPIN [Concomitant]
     Active Substance: DOXEPIN
     Dosage: 25 MG, QD
     Dates: end: 20150312
  7. ERYTHROPOETIN [Concomitant]
     Active Substance: ERYTHROPOIETIN
     Dosage: UNK
     Dates: start: 20150121
  8. EINSALPHA [Concomitant]
     Dosage: 0.25 UG, QD
     Dates: start: 20150312
  9. DREISAVIT                          /00844801/ [Concomitant]
     Dosage: 1 DF, QD
     Dates: start: 20150312
  10. DACLATASVIR [Suspect]
     Active Substance: DACLATASVIR
     Indication: CHRONIC HEPATITIS C
     Dosage: 60 MG, QD
     Route: 048
     Dates: start: 20141126, end: 20150211
  11. PROPRANOLOL [Concomitant]
     Active Substance: PROPRANOLOL\PROPRANOLOL HYDROCHLORIDE
     Dosage: 80 MG, QD
     Dates: start: 20150312
  12. FUROSEMID RATIOPHARM               /00032601/ [Concomitant]
     Active Substance: FUROSEMIDE
     Indication: RENAL FAILURE
     Dosage: 200 MG, QD
     Route: 048
     Dates: start: 20141126
  13. LEVEMIR [Concomitant]
     Active Substance: INSULIN DETEMIR
     Dosage: UNK, QD
  14. NOVORAPID [Concomitant]
     Active Substance: INSULIN ASPART
     Dosage: UNK
  15. FOSRENOL [Concomitant]
     Active Substance: LANTHANUM CARBONATE
     Dosage: 3000 MG, QD
     Dates: start: 20150312
  16. PANTOPRAZOLE SODIUM. [Concomitant]
     Active Substance: PANTOPRAZOLE SODIUM
     Dosage: 80 MG, QD
  17. AMLODIPIN                          /00972401/ [Concomitant]
     Active Substance: AMLODIPINE BESYLATE
     Dosage: 10 MG, QD
  18. CANDESARTAN [Concomitant]
     Active Substance: CANDESARTAN
     Dosage: 16 MG, QD
     Dates: end: 20150320
  19. L-THYROXIN [Concomitant]
     Active Substance: LEVOTHYROXINE SODIUM
     Dosage: 50 UG, QD
  20. DOXEPIN [Concomitant]
     Active Substance: DOXEPIN
     Dosage: 75 MG, QD
     Dates: start: 20150312
  21. RENAPRIL [Concomitant]
     Dosage: UNK, Q1WK
     Dates: start: 20150312

REACTIONS (3)
  - Pneumonia [Recovered/Resolved]
  - Dehydration [Recovered/Resolved]
  - C-reactive protein abnormal [Unknown]

NARRATIVE: CASE EVENT DATE: 20150305
